FAERS Safety Report 5276094-0 (Version None)
Quarter: 2007Q1

REPORT INFORMATION
  Report Type: 
  Country: None (occurrence: None)
  Receive Date: 20070326
  Receipt Date: 20070221
  Transmission Date: 20070707
  Serious: Yes (Hospitalization, Other)
  Sender: FDA-Public Use
  Company Number: GBWYE044715MAR07

PATIENT
  Age: 8 Year
  Sex: Male

DRUGS (2)
  1. IBUPROFEN [Suspect]
     Indication: VIRAEMIA
     Route: 048
  2. ACETAMINOPHEN [Concomitant]
     Indication: VIRAEMIA

REACTIONS (9)
  - APPENDICITIS [None]
  - BLOOD CREATININE INCREASED [None]
  - LUNG CONSOLIDATION [None]
  - OEDEMA PERIPHERAL [None]
  - RASH MACULAR [None]
  - RENAL PAPILLARY NECROSIS [None]
  - SOMNOLENCE [None]
  - URETERIC OBSTRUCTION [None]
  - URETHRAL HAEMORRHAGE [None]
